FAERS Safety Report 20859694 (Version 1)
Quarter: 2022Q2

REPORT INFORMATION
  Report Type: Spontaneous
  Country: JP (occurrence: JP)
  Receive Date: 20220523
  Receipt Date: 20220523
  Transmission Date: 20220720
  Serious: Yes (Other)
  Sender: FDA-Public Use
  Company Number: JP-SUN PHARMACEUTICAL INDUSTRIES LTD-2022RR-337387

PATIENT
  Age: 65 Year
  Sex: Male
  Weight: 49.1 kg

DRUGS (13)
  1. ACETAMINOPHEN [Suspect]
     Active Substance: ACETAMINOPHEN
     Indication: Pain
     Dosage: 1500 MILLIGRAM, DAILY
     Route: 065
  2. CISPLATIN [Suspect]
     Active Substance: CISPLATIN
     Indication: Oropharyngeal cancer
     Dosage: 100 MILLIGRAM/SQ. METER, MONTHLY
     Route: 065
  3. OXYCODONE [Interacting]
     Active Substance: OXYCODONE
     Indication: Cancer pain
     Dosage: 10 MILLIGRAM, DAILY, EXTENDED-RELEASE
     Route: 065
  4. OXYCODONE [Interacting]
     Active Substance: OXYCODONE
     Dosage: 20 MILLIGRAM, DAILY, EXTENDED-RELEASE
     Route: 065
  5. OXYCODONE [Interacting]
     Active Substance: OXYCODONE
     Dosage: 10 MILLIGRAM, BID, EXTENDED-RELEASE
     Route: 065
  6. OXYCODONE [Interacting]
     Active Substance: OXYCODONE
     Indication: Cancer pain
     Dosage: 2.5 MILLIGRAM, DAILY, IMMEDIATE-RELEASE (AS RESCUE DRUG)
     Route: 065
  7. OXYCODONE [Interacting]
     Active Substance: OXYCODONE
     Dosage: 5 MILLIGRAM, DAILY, IMMEDIATE-RELEASE (AS RESCUE DRUG)
     Route: 065
  8. OXYCODONE [Interacting]
     Active Substance: OXYCODONE
     Dosage: 5 MILLIGRAM, TID, IMMEDIATE-RELEASE (AS RESCUE DRUG)
     Route: 065
  9. FENTANYL [Interacting]
     Active Substance: FENTANYL
     Indication: Cancer pain
     Dosage: 1 MILLIGRAM
     Route: 062
  10. LOXOPROFEN [Concomitant]
     Active Substance: LOXOPROFEN
     Indication: Pain
     Dosage: 180 MILLIGRAM, DAILY
     Route: 065
  11. MORPHINE [Concomitant]
     Active Substance: MORPHINE
     Indication: Cancer pain
     Dosage: 5 MILLIGRAM, UNK
     Route: 048
  12. MORPHINE [Concomitant]
     Active Substance: MORPHINE
     Dosage: 5 MILLIGRAM, FIVE TIMES A DAY
     Route: 048
  13. NIVOLUMAB [Concomitant]
     Active Substance: NIVOLUMAB
     Indication: Oropharyngeal cancer
     Dosage: 240 MILLIGRAM, DAILY, EVERY 2 WEEKS
     Route: 042

REACTIONS (5)
  - Skin erosion [Unknown]
  - Disease recurrence [Unknown]
  - Malignant neoplasm progression [Unknown]
  - Condition aggravated [Unknown]
  - Drug interaction [Unknown]
